FAERS Safety Report 7207077-9 (Version None)
Quarter: 2011Q1

REPORT INFORMATION
  Report Type: 
  Country: None (occurrence: None)
  Receive Date: 20110103
  Receipt Date: 20101221
  Transmission Date: 20110831
  Serious: Yes (Hospitalization)
  Sender: FDA-Public Use
  Company Number: B0691629A

PATIENT
  Age: 42 Year
  Sex: Female

DRUGS (7)
  1. LAMIVUDINE [Suspect]
     Indication: HIV INFECTION
     Route: 065
  2. NEVIRAPINE [Suspect]
     Indication: HIV INFECTION
     Route: 065
  3. RIFAMPICIN [Concomitant]
     Indication: TUBERCULOSIS
  4. ISONIAZID [Concomitant]
     Indication: TUBERCULOSIS
     Route: 065
  5. ZIDOVUDINE [Suspect]
     Indication: HIV INFECTION
     Route: 065
  6. PYRAZINAMIDE [Concomitant]
     Indication: TUBERCULOSIS
  7. ETHAMBUTOL HYDROCHLORIDE [Concomitant]
     Indication: TUBERCULOSIS

REACTIONS (7)
  - NAUSEA [None]
  - CD4 LYMPHOCYTES INCREASED [None]
  - INFLAMMATION [None]
  - ARTHRALGIA [None]
  - ABDOMINAL PAIN [None]
  - IMMUNE RECONSTITUTION SYNDROME [None]
  - LYMPHADENITIS [None]
